FAERS Safety Report 4796607-2 (Version None)
Quarter: 2005Q3

REPORT INFORMATION
  Report Type: 
  Country: None (occurrence: None)
  Receive Date: 20050916
  Receipt Date: 20041210
  Transmission Date: 20060218
  Serious: Yes (Hospitalization)
  Sender: FDA-Public Use
  Company Number: US-JNJFOC-20041203442

PATIENT

DRUGS (5)
  1. TOPAMAX [Suspect]
     Indication: BACK PAIN
     Dosage: 25 MG, 2 IN 1 DAY
     Dates: start: 20041021, end: 20041115
  2. DIOVAN [Concomitant]
  3. GLIPIZIDE [Concomitant]
  4. SYNTHROID [Concomitant]
  5. NORVASC [Concomitant]

REACTIONS (3)
  - ANOREXIA [None]
  - MOOD SWINGS [None]
  - PULMONARY EMBOLISM [None]
